FAERS Safety Report 15258037 (Version 3)
Quarter: 2018Q3

REPORT INFORMATION
  Report Type: Spontaneous
  Country: US (occurrence: US)
  Receive Date: 20180808
  Receipt Date: 20180924
  Transmission Date: 20181010
  Serious: Yes (Hospitalization, Other)
  Sender: FDA-Public Use
  Company Number: US-AUROBINDO-AUR-APL-2018-040483

PATIENT
  Age: 27 Year
  Sex: Male

DRUGS (3)
  1. BUPRENORPHINE AND NALOXONE [Suspect]
     Active Substance: BUPRENORPHINE\NALOXONE
     Indication: SEDATION
  2. BUPRENORPHINE AND NALOXONE [Suspect]
     Active Substance: BUPRENORPHINE\NALOXONE
     Indication: EUPHORIC MOOD
     Dosage: DOUBLE DOSE ; IN TOTAL
     Route: 065
  3. GABAPENTIN TABLETS USP 600MG [Suspect]
     Active Substance: GABAPENTIN
     Dosage: 6 DOSAGE FORM IN TOTAL
     Route: 065

REACTIONS (2)
  - Drug abuse [Unknown]
  - Depressed level of consciousness [Unknown]
